FAERS Safety Report 10059668 (Version 1)
Quarter: 2014Q2

REPORT INFORMATION
  Report Type: Spontaneous
  Country: US (occurrence: US)
  Receive Date: 20140404
  Receipt Date: 20140404
  Transmission Date: 20141212
  Serious: No
  Sender: FDA-Public Use
  Company Number: US-GLAXOSMITHKLINE-A1036233A

PATIENT
  Age: 77 Year
  Sex: Male

DRUGS (8)
  1. ALLI [Suspect]
     Indication: WEIGHT DECREASED
     Dates: start: 20130708
  2. OMEPRAZOLE [Concomitant]
  3. SIMVASTATIN [Concomitant]
  4. B12 VITAMIN [Concomitant]
  5. IRON [Concomitant]
  6. VITAMIN D3 [Concomitant]
  7. MULTIVITAMIN [Concomitant]
  8. STOOL SOFTENER [Concomitant]

REACTIONS (5)
  - Drug ineffective [Unknown]
  - Rectal discharge [Recovered/Resolved]
  - Flatulence [Recovered/Resolved]
  - Faecal incontinence [Recovered/Resolved]
  - Drug interaction [Not Recovered/Not Resolved]
